FAERS Safety Report 10451673 (Version 1)
Quarter: 2014Q3

REPORT INFORMATION
  Report Type: Spontaneous
  Country: DE (occurrence: DE)
  Receive Date: 20140915
  Receipt Date: 20140915
  Transmission Date: 20150326
  Serious: Yes (Hospitalization)
  Sender: FDA-Public Use
  Company Number: DE-ROCHE-1461046

PATIENT
  Age: 56 Year
  Sex: Male

DRUGS (14)
  1. MABTHERA [Suspect]
     Active Substance: RITUXIMAB
     Dosage: R-CHOP REGIME, 3 CYCLES
     Route: 042
     Dates: start: 201401, end: 201403
  2. VINCRISTIN [Concomitant]
     Active Substance: VINCRISTINE
     Indication: B-CELL LYMPHOMA
     Dosage: ON DAY 1 OF THE CYCLE, R-CHOP REGIME, 3 CYCLES
     Route: 042
     Dates: start: 201312, end: 201401
  3. MABTHERA [Suspect]
     Active Substance: RITUXIMAB
     Dosage: MONOTHERAPY
     Route: 042
  4. PREDNISONE. [Concomitant]
     Active Substance: PREDNISONE
     Dosage: R-CHOP REGIME, 3 CYCLES
     Route: 048
     Dates: start: 201401, end: 201403
  5. PANTOZOL [Concomitant]
     Active Substance: PANTOPRAZOLE SODIUM
     Route: 065
  6. DOXORUBICIN [Concomitant]
     Active Substance: DOXORUBICIN
     Dosage: ON DAY 1 OF THE CYCLE, R-CHOP REGIME, 3 CYCLES
     Route: 042
     Dates: start: 201401, end: 201403
  7. SYMBICORT [Concomitant]
     Active Substance: BUDESONIDE\FORMOTEROL FUMARATE DIHYDRATE
     Dosage: 160/4.5 MG
     Route: 065
  8. VINCRISTIN [Concomitant]
     Active Substance: VINCRISTINE
     Dosage: R-CHOP REGIME, 2 CYCLES
     Route: 042
     Dates: start: 201401, end: 201403
  9. MABTHERA [Suspect]
     Active Substance: RITUXIMAB
     Indication: B-CELL LYMPHOMA
     Dosage: ON DAY 1 OF THE CYCLE, R-CHOP REGIME, 3 CYCLES
     Route: 042
     Dates: start: 201312, end: 201401
  10. PREDNISONE. [Concomitant]
     Active Substance: PREDNISONE
     Indication: B-CELL LYMPHOMA
     Dosage: ON DAY 1 OF THE CYCLE, R-CHOP REGIME, 3 CYCLES
     Route: 048
  11. DOXORUBICIN [Concomitant]
     Active Substance: DOXORUBICIN
     Indication: B-CELL LYMPHOMA
     Dosage: ON DAY 1 OF THE CYCLE, R-CHOP REGIME, 3 CYCLES
     Route: 042
     Dates: start: 201312, end: 201401
  12. CYCLOPHOSPHAMIDE. [Concomitant]
     Active Substance: CYCLOPHOSPHAMIDE
     Dosage: 1,4 MG/M2?R-CHOP REGIME, 2 CYCLES
     Route: 042
     Dates: start: 201401, end: 201403
  13. MABTHERA [Suspect]
     Active Substance: RITUXIMAB
     Dosage: MONOTHERAPY
     Route: 042
  14. CYCLOPHOSPHAMIDE. [Concomitant]
     Active Substance: CYCLOPHOSPHAMIDE
     Indication: B-CELL LYMPHOMA
     Dosage: 1,4 MG/M2?ON DAY 1 OF THE CYCLE, R-CHOP REGIME, 3 CYCLES
     Route: 042
     Dates: start: 201312, end: 201401

REACTIONS (3)
  - Eosinophilia [Recovering/Resolving]
  - Dyspnoea exertional [Recovering/Resolving]
  - Alveolitis [Recovering/Resolving]

NARRATIVE: CASE EVENT DATE: 201404
